FAERS Safety Report 4844402-8 (Version None)
Quarter: 2005Q4

REPORT INFORMATION
  Report Type: 
  Country: None (occurrence: None)
  Receive Date: 20051202
  Receipt Date: 20051004
  Transmission Date: 20060501
  Serious: Yes (Hospitalization)
  Sender: FDA-Public Use
  Company Number: US-MERCK-0510USA03148

PATIENT
  Age: 70 Year
  Sex: Male
  Weight: 89 kg

DRUGS (2)
  1. VIOXX [Suspect]
     Indication: ARTHRITIS
     Route: 048
  2. VIOXX [Suspect]
     Indication: ARTHRALGIA
     Route: 048

REACTIONS (4)
  - ANGINA UNSTABLE [None]
  - BLADDER OBSTRUCTION [None]
  - CORONARY ARTERY OCCLUSION [None]
  - ULCER HAEMORRHAGE [None]
